FAERS Safety Report 9308496 (Version 1)
Quarter: 2013Q2

REPORT INFORMATION
  Report Type: Spontaneous
  Country: DE (occurrence: DE)
  Receive Date: 20130524
  Receipt Date: 20130524
  Transmission Date: 20140414
  Serious: Yes (Hospitalization, Other)
  Sender: FDA-Public Use
  Company Number: DE-ROCHE-1214509

PATIENT
  Age: 58 Year
  Sex: Male

DRUGS (7)
  1. ZELBORAF [Suspect]
     Indication: METASTATIC MALIGNANT MELANOMA
     Route: 048
     Dates: start: 20121115
  2. ASS [Concomitant]
     Indication: CORONARY ARTERY DISEASE
     Route: 048
  3. NEBIVOLOL [Concomitant]
     Indication: HYPERTENSION
     Route: 048
  4. RAMIPRIL [Concomitant]
     Indication: HYPERTENSION
     Route: 048
  5. SIMVAHEXAL [Concomitant]
     Indication: HYPERCHOLESTEROLAEMIA
     Route: 048
  6. METAMIZOL [Concomitant]
     Indication: PAIN PROPHYLAXIS
     Route: 048
  7. ZOLEDRONIC ACID [Concomitant]
     Route: 065

REACTIONS (7)
  - Keratoacanthoma [Recovered/Resolved]
  - Cyst [Unknown]
  - Malignant neoplasm progression [Unknown]
  - Metastases to central nervous system [Unknown]
  - Intracranial tumour haemorrhage [Unknown]
  - Dizziness [Recovering/Resolving]
  - Visual field defect [Recovering/Resolving]
